FAERS Safety Report 6372507-1 (Version None)
Quarter: 2009Q3

REPORT INFORMATION
  Report Type: 
  Country: None (occurrence: None)
  Receive Date: 20090924
  Receipt Date: 20080926
  Transmission Date: 20100115
  Serious: No
  Sender: FDA-Public Use
  Company Number: US-ASTRAZENECA-2008UW20656

PATIENT
  Age: 84 Year
  Sex: Female
  Weight: 68 kg

DRUGS (7)
  1. SEROQUEL [Suspect]
     Indication: DEMENTIA
     Route: 048
  2. SEROQUEL [Suspect]
     Route: 048
  3. BUSPIRONE HCL [Concomitant]
  4. LEXAPRO [Concomitant]
  5. CRESTOR [Concomitant]
  6. PROTONIX [Concomitant]
  7. LOTREL [Concomitant]

REACTIONS (9)
  - ABNORMAL DREAMS [None]
  - CHILLS [None]
  - DIZZINESS [None]
  - FORMICATION [None]
  - IRRITABILITY [None]
  - MUSCULAR WEAKNESS [None]
  - PRURITUS [None]
  - URINE OUTPUT INCREASED [None]
  - WEIGHT DECREASED [None]
